FAERS Safety Report 6890544-5 (Version None)
Quarter: 2010Q3

REPORT INFORMATION
  Report Type: 
  Country: None (occurrence: None)
  Receive Date: 20100731
  Receipt Date: 20081118
  Transmission Date: 20110219
  Serious: No
  Sender: FDA-Public Use
  Company Number: US-PFIZER INC-2008098187

PATIENT
  Age: 46 Year
  Sex: Male

DRUGS (6)
  1. LIPITOR [Suspect]
  2. MEGA MEN [Suspect]
     Dates: start: 20080101, end: 20081101
  3. SULAR [Concomitant]
  4. TRAMADOL HYDROCHLORIDE [Concomitant]
  5. FLEXERIL [Concomitant]
  6. PERCOCET [Concomitant]

REACTIONS (1)
  - BLOOD PRESSURE INCREASED [None]
